FAERS Safety Report 6507073-0 (Version None)
Quarter: 2009Q4

REPORT INFORMATION
  Report Type: 
  Country: None (occurrence: None)
  Receive Date: 20091221
  Receipt Date: 20091208
  Transmission Date: 20100525
  Serious: Yes (Other)
  Sender: FDA-Public Use
  Company Number: PHHY2009BR54783

PATIENT
  Age: 82 Year
  Sex: Male

DRUGS (3)
  1. EXELON [Suspect]
     Indication: MEMORY IMPAIRMENT
     Dosage: 1 PATCH (9MG/5CM2) EVERY 24 HOURS
     Route: 062
     Dates: start: 20091203, end: 20091207
  2. TEGRETOL [Concomitant]
     Indication: CONVULSION
     Dosage: 1 DF, BID
     Dates: start: 19940101
  3. SEROQUEL [Concomitant]
     Dosage: 2 TABLETS DAILY
     Route: 048
     Dates: start: 20091121

REACTIONS (6)
  - AGGRESSION [None]
  - AGITATION [None]
  - DECREASED APPETITE [None]
  - DISORIENTATION [None]
  - SUICIDAL IDEATION [None]
  - SYNCOPE [None]
